FAERS Safety Report 11382849 (Version 1)
Quarter: 2015Q3

REPORT INFORMATION
  Report Type: Report from Study
  Country: US (occurrence: US)
  Receive Date: 20150814
  Receipt Date: 20150814
  Transmission Date: 20151125
  Serious: Yes (Hospitalization, Other)
  Sender: FDA-Public Use
  Company Number: US-BAYER-2015-375209

PATIENT
  Age: 67 Year
  Sex: Female

DRUGS (4)
  1. STIVARGA [Suspect]
     Active Substance: REGORAFENIB
     Indication: COLORECTAL CANCER METASTATIC
     Dosage: 120 MG, QD
     Route: 048
     Dates: start: 20150705, end: 20150708
  2. STIVARGA [Suspect]
     Active Substance: REGORAFENIB
     Indication: COLORECTAL CANCER METASTATIC
     Dosage: 80 MG, QD
     Route: 048
     Dates: end: 20150704
  3. STIVARGA [Suspect]
     Active Substance: REGORAFENIB
     Indication: COLORECTAL CANCER METASTATIC
     Dosage: 160 MG, QD
     Route: 048
     Dates: start: 20150628
  4. FONDAPARINUX [Concomitant]
     Active Substance: FONDAPARINUX
     Indication: PULMONARY THROMBOSIS

REACTIONS (7)
  - Diarrhoea [None]
  - Renal failure [None]
  - Adverse reaction [None]
  - Constipation [Recovered/Resolved]
  - Gingival bleeding [None]
  - Gingivitis [None]
  - Headache [None]

NARRATIVE: CASE EVENT DATE: 20150628
